FAERS Safety Report 22350433 (Version 1)
Quarter: 2023Q2

REPORT INFORMATION
  Report Type: Spontaneous
  Country: KR (occurrence: KR)
  Receive Date: 20230522
  Receipt Date: 20230522
  Transmission Date: 20230722
  Serious: Yes (Hospitalization)
  Sender: FDA-Public Use
  Company Number: KR-MYLANLABS-2023M1051549

PATIENT
  Age: 38 Year
  Sex: Female

DRUGS (2)
  1. CELEBREX [Suspect]
     Active Substance: CELECOXIB
     Indication: Back pain
     Dosage: 1 DOSAGE FORM, QD
     Route: 048
     Dates: start: 20180711, end: 20180711
  2. AFLOQUALONE [Suspect]
     Active Substance: AFLOQUALONE
     Indication: Back pain
     Dosage: 1 DOSAGE FORM, QD
     Route: 048
     Dates: start: 20180711, end: 20180711

REACTIONS (3)
  - Skin burning sensation [Recovered/Resolved]
  - Pruritus [Recovered/Resolved]
  - Rash [Recovered/Resolved]

NARRATIVE: CASE EVENT DATE: 20180711
